FAERS Safety Report 6471074-1 (Version None)
Quarter: 2009Q4

REPORT INFORMATION
  Report Type: 
  Country: None (occurrence: None)
  Receive Date: 20091203
  Receipt Date: 20081129
  Transmission Date: 20100525
  Serious: No
  Sender: FDA-Public Use
  Company Number: US-AMGEN-KDL321223

PATIENT
  Sex: Female

DRUGS (1)
  1. ENBREL [Suspect]
     Indication: RHEUMATOID ARTHRITIS
     Route: 058
     Dates: start: 20081113

REACTIONS (7)
  - BLOODY DISCHARGE [None]
  - DRUG INEFFECTIVE [None]
  - GINGIVAL BLEEDING [None]
  - GINGIVAL INFECTION [None]
  - GINGIVAL PAIN [None]
  - INSOMNIA [None]
  - SINUSITIS [None]
